FAERS Safety Report 8252865-3 (Version None)
Quarter: 2012Q2

REPORT INFORMATION
  Report Type: 
  Country: None (occurrence: None)
  Receive Date: 20120402
  Receipt Date: 20120202
  Transmission Date: 20120825
  Serious: No
  Sender: FDA-Public Use
  Company Number: US-ABBOTT-12P-163-0903462-00

PATIENT
  Sex: Male
  Weight: 71.732 kg

DRUGS (11)
  1. ANDROGEL [Suspect]
     Route: 061
  2. ANDROGEL [Suspect]
     Route: 061
     Dates: end: 20110101
  3. MS CONTIN [Concomitant]
     Indication: PAIN
     Dates: end: 20110101
  4. ANDROGEL [Suspect]
     Route: 061
     Dates: start: 20110101, end: 20120124
  5. HYOSCYAMINE [Concomitant]
     Indication: BLADDER SPASM
  6. ANDROGEL [Suspect]
     Indication: BLOOD TESTOSTERONE DECREASED
     Dosage: 1 IN 1 DAY, PACKETS
     Route: 061
  7. ANDROGEL [Suspect]
     Route: 061
     Dates: start: 20120124
  8. IPRATROPIUM [Concomitant]
     Indication: PRODUCT USED FOR UNKNOWN INDICATION
     Route: 045
  9. METHADONE HCL [Concomitant]
     Indication: PAIN
  10. CORTICOSTEROIDS [Suspect]
     Indication: PRODUCT USED FOR UNKNOWN INDICATION
     Route: 047
     Dates: end: 20120101
  11. HYOSCYAMINE [Concomitant]
     Indication: GASTROINTESTINAL PAIN

REACTIONS (8)
  - POLLAKIURIA [None]
  - HOT FLUSH [None]
  - BLOOD TESTOSTERONE DECREASED [None]
  - ASTHENIA [None]
  - BLOOD TESTOSTERONE INCREASED [None]
  - DYSPNOEA [None]
  - URINARY TRACT DISORDER [None]
  - OEDEMA [None]
